FAERS Safety Report 7609162-6 (Version None)
Quarter: 2011Q3

REPORT INFORMATION
  Report Type: 
  Country: None (occurrence: None)
  Receive Date: 20110714
  Receipt Date: 20110711
  Transmission Date: 20111222
  Serious: Yes (Disabling, Other)
  Sender: FDA-Public Use
  Company Number: US-TEVA-289840USA

PATIENT
  Sex: Male

DRUGS (1)
  1. METHOTREXATE [Suspect]
     Indication: PSORIASIS

REACTIONS (3)
  - HYPOXIC-ISCHAEMIC ENCEPHALOPATHY [None]
  - ABASIA [None]
  - OSMOTIC DEMYELINATION SYNDROME [None]
